FAERS Safety Report 9259917 (Version 2)
Quarter: 2014Q1

REPORT INFORMATION
  Report Type: Spontaneous
  Country: US (occurrence: US)
  Receive Date: 20130429
  Receipt Date: 20140103
  Transmission Date: 20141002
  Serious: Yes (Disabling, Other)
  Sender: FDA-Public Use
  Company Number: US-ASTRAZENECA-2013SE27589

PATIENT
  Age: 22 Year
  Sex: Female
  Weight: 54.4 kg

DRUGS (7)
  1. NEXIUM [Suspect]
     Indication: GASTROOESOPHAGEAL REFLUX DISEASE
     Dosage: ONCE
     Route: 048
     Dates: start: 2000, end: 2007
  2. NEXIUM [Suspect]
     Indication: GASTROOESOPHAGEAL REFLUX DISEASE
     Route: 048
     Dates: start: 20060426
  3. OMEPRAZOLE [Suspect]
     Indication: GASTROOESOPHAGEAL REFLUX DISEASE
     Dosage: GENERIC, OTC
     Route: 048
  4. OMEPRAZOLE [Suspect]
     Indication: GASTROOESOPHAGEAL REFLUX DISEASE
     Route: 048
     Dates: start: 20060516
  5. ZANTAC [Concomitant]
     Dates: start: 1999, end: 2002
  6. ASPIRIN [Concomitant]
     Dosage: IF NEEDED
  7. TYLENOL [Concomitant]
     Dosage: IF NEEDED

REACTIONS (12)
  - Hip fracture [Unknown]
  - Pelvic fracture [Unknown]
  - Arthritis [Unknown]
  - Mobility decreased [Unknown]
  - Bone cancer [Unknown]
  - Osteoporosis [Unknown]
  - Bone disorder [Unknown]
  - Multiple fractures [Unknown]
  - Vitamin D deficiency [Unknown]
  - Calcium deficiency [Unknown]
  - Palpitations [Unknown]
  - Depression [Unknown]
